FAERS Safety Report 11571708 (Version 2)
Quarter: 2016Q4

REPORT INFORMATION
  Report Type: Spontaneous
  Country: US (occurrence: US)
  Receive Date: 20150929
  Receipt Date: 20161007
  Transmission Date: 20170206
  Serious: No
  Sender: FDA-Public Use
  Company Number: US-SA-2015SA115719

PATIENT
  Age: 59 Year
  Sex: Female

DRUGS (1)
  1. AUBAGIO [Suspect]
     Active Substance: TERIFLUNOMIDE
     Indication: MULTIPLE SCLEROSIS
     Route: 048

REACTIONS (7)
  - Gait disturbance [Unknown]
  - Depression [Unknown]
  - Memory impairment [Unknown]
  - Paraesthesia [Unknown]
  - Fatigue [Unknown]
  - Pain in extremity [Unknown]
  - Psoriasis [Unknown]
